FAERS Safety Report 6663033-0 (Version None)
Quarter: 2010Q2

REPORT INFORMATION
  Report Type: 
  Country: None (occurrence: None)
  Receive Date: 20100401
  Receipt Date: 20100325
  Transmission Date: 20101027
  Serious: Yes (Other)
  Sender: FDA-Public Use
  Company Number: TR-ELI_LILLY_AND_COMPANY-TR201003007032

PATIENT
  Age: 32 Year
  Sex: Female

DRUGS (6)
  1. HUMULIN N [Suspect]
     Indication: GESTATIONAL DIABETES
     Dosage: 13 IU, DAILY (1/D)
     Route: 058
     Dates: end: 20100106
  2. NOVORAPID [Concomitant]
     Dosage: 11 IU, EACH MORNING
     Dates: start: 20090101, end: 20100106
  3. NOVORAPID [Concomitant]
     Dosage: 11 IU, OTHER
     Dates: start: 20090101, end: 20100106
  4. NOVORAPID [Concomitant]
     Dosage: 13 IU, EACH EVENING
     Dates: start: 20090101, end: 20100106
  5. IRON [Concomitant]
     Indication: MINERAL SUPPLEMENTATION
     Dosage: UNK, 2/D
     Dates: start: 20090101
  6. ANTIEMETICS AND ANTINAUSEANTS [Concomitant]

REACTIONS (4)
  - DRUG EXPOSURE DURING PREGNANCY [None]
  - HAEMORRHAGE [None]
  - PLACENTA PRAEVIA [None]
  - PREMATURE LABOUR [None]
